FAERS Safety Report 6222132-8 (Version None)
Quarter: 2009Q2

REPORT INFORMATION
  Report Type: 
  Country: None (occurrence: None)
  Receive Date: 20090609
  Receipt Date: 20090602
  Transmission Date: 20091009
  Serious: Yes (Death)
  Sender: FDA-Public Use
  Company Number: 1000006589

PATIENT
  Age: 85 Year
  Sex: Female

DRUGS (1)
  1. CELEXA [Suspect]

REACTIONS (1)
  - DEATH [None]
